FAERS Safety Report 7495668-X (Version None)
Quarter: 2011Q2

REPORT INFORMATION
  Report Type: 
  Country: None (occurrence: None)
  Receive Date: 20110523
  Receipt Date: 20110518
  Transmission Date: 20111010
  Serious: No
  Sender: FDA-Public Use
  Company Number: US-PFIZER INC-2011108198

PATIENT
  Sex: Female
  Weight: 10.431 kg

DRUGS (1)
  1. GENOTROPIN [Suspect]
     Indication: TURNER'S SYNDROME
     Dosage: 0.5 MG, DAILY
     Route: 058
     Dates: start: 20110516

REACTIONS (1)
  - EPISTAXIS [None]
